FAERS Safety Report 6408319-X (Version None)
Quarter: 2009Q4

REPORT INFORMATION
  Report Type: 
  Country: None (occurrence: None)
  Receive Date: 20091021
  Receipt Date: 20091012
  Transmission Date: 20100525
  Serious: Yes (Other)
  Sender: FDA-Public Use
  Company Number: US-JNJFOC-20091004250

PATIENT
  Sex: Male

DRUGS (4)
  1. CONCERTA [Suspect]
     Route: 048
  2. CONCERTA [Suspect]
     Indication: ATTENTION DEFICIT/HYPERACTIVITY DISORDER
     Route: 048
  3. PROZAC [Concomitant]
  4. ASPIRIN [Concomitant]
     Route: 048

REACTIONS (2)
  - GASTROINTESTINAL ULCER [None]
  - GASTROOESOPHAGEAL REFLUX DISEASE [None]
